FAERS Safety Report 9458235 (Version 1)
Quarter: 2013Q3

REPORT INFORMATION
  Report Type: Spontaneous
  Country: US (occurrence: None)
  Receive Date: 20130812
  Receipt Date: 20130812
  Transmission Date: 20140515
  Serious: Yes (Other)
  Sender: FDA-Public Use
  Company Number: AG-2012-1302

PATIENT
  Age: 69 Year
  Sex: Male
  Weight: 64 kg

DRUGS (7)
  1. CHLORAMBUCIL [Suspect]
     Indication: CHRONIC LYMPHOCYTIC LEUKAEMIA
     Dosage: 10 MGM2 CYCLIC (10 MG/M2, UNKNOWN) ORAL
     Route: 048
     Dates: start: 20120810
  2. RITUXIMAB (RITUXIMAB) [Suspect]
     Indication: CHRONIC LYMPHOCYTIC LEUKAEMIA
     Route: 042
     Dates: start: 20120810
  3. INVESTIGATIONAL DRUG, UNSPECIFIED [Suspect]
     Indication: CHRONIC LYMPHOCYTIC LEUKAEMIA
     Dates: start: 20120810
  4. ACYCLOVIR (ACICLOVIR) (UNKNOWN) [Concomitant]
  5. ALLOPURINOL (ALLOPURINOL) (UNKNOWN) [Concomitant]
  6. CIPROFLOXACIN (CIPROFLOXACIN) (UNKNOWN) [Concomitant]
  7. LISINOPRIL (LISINOPRIL) (UNKNOWN) [Concomitant]

REACTIONS (6)
  - Diarrhoea [None]
  - Vomiting [None]
  - Haematochezia [None]
  - Pyrexia [None]
  - Chills [None]
  - Nausea [None]
